FAERS Safety Report 8482275-5 (Version None)
Quarter: 2012Q3

REPORT INFORMATION
  Report Type: 
  Country: None (occurrence: None)
  Receive Date: 20120702
  Receipt Date: 20120628
  Transmission Date: 20120928
  Serious: Yes (Life-Threatening, Hospitalization, Other)
  Sender: FDA-Public Use
  Company Number: PHHO2012DE006099

PATIENT
  Sex: Female
  Weight: 66 kg

DRUGS (7)
  1. SIMVASTATIN [Concomitant]
     Indication: HYPERCHOLESTEROLAEMIA
     Dosage: 20 MG, QD
     Route: 048
     Dates: start: 20090101
  2. TASIGNA [Suspect]
     Dosage: 300 MG, BID
     Route: 048
     Dates: start: 20120426, end: 20120501
  3. TASIGNA [Suspect]
     Indication: CHRONIC MYELOID LEUKAEMIA
     Dosage: 300 MG, BID
     Route: 048
     Dates: start: 20110117, end: 20120415
  4. TASIGNA [Suspect]
     Dosage: 150 MG, BID
     Route: 048
     Dates: start: 20120502
  5. OMEPRAZOLE [Concomitant]
     Indication: PROPHYLAXIS
     Dosage: 20 MG, QD
     Route: 048
     Dates: start: 20090101
  6. XALCOM [Concomitant]
     Indication: GLAUCOMA
     Dosage: ONCE A DAY
     Dates: start: 20080101
  7. NEBIVOLOL HCL [Concomitant]
     Indication: HYPERTENSION
     Dosage: 2.5 MG, QD
     Route: 048
     Dates: start: 20030101

REACTIONS (2)
  - VOMITING [None]
  - BARTTER'S SYNDROME [None]
